FAERS Safety Report 8941238 (Version 1)
Quarter: 2012Q4

REPORT INFORMATION
  Report Type: 
  Country: IT (occurrence: IT)
  Receive Date: 20121203
  Receipt Date: 20121203
  Transmission Date: 20130627
  Serious: Yes (Other)
  Sender: FDA-Public Use
  Company Number: IT-ASTRAZENECA-2012SE89047

PATIENT
  Sex: Male

DRUGS (1)
  1. BRILIQUE [Suspect]
     Route: 048
     Dates: start: 20121025

REACTIONS (1)
  - Electrocardiogram abnormal [Recovered/Resolved]
